FAERS Safety Report 7927014-9 (Version None)
Quarter: 2011Q4

REPORT INFORMATION
  Report Type: 
  Country: None (occurrence: None)
  Receive Date: 20111118
  Receipt Date: 20111111
  Transmission Date: 20120403
  Serious: Yes (Other)
  Sender: FDA-Public Use
  Company Number: US-JNJFOC-20111105757

PATIENT
  Sex: Female
  Weight: 45.36 kg

DRUGS (2)
  1. RISPERDAL [Suspect]
     Indication: DEPRESSION
     Route: 048
     Dates: start: 20111110, end: 20111110
  2. RISPERDAL [Suspect]
     Route: 048
     Dates: start: 20111101

REACTIONS (3)
  - SUICIDE ATTEMPT [None]
  - SELF-INDUCED VOMITING [None]
  - EDUCATIONAL PROBLEM [None]
